FAERS Safety Report 10006611 (Version 2)
Quarter: 2014Q2

REPORT INFORMATION
  Report Type: Spontaneous
  Country: US (occurrence: US)
  Receive Date: 20140313
  Receipt Date: 20140602
  Transmission Date: 20141212
  Serious: No
  Sender: FDA-Public Use
  Company Number: US-PFIZER INC-2014068220

PATIENT
  Age: 53 Year
  Sex: Male

DRUGS (13)
  1. VIAGRA [Suspect]
     Indication: ERECTILE DYSFUNCTION
     Dosage: 50 MG (1 TABLET), ONCE DAILY AS NEEDED
     Route: 048
  2. VIAGRA [Suspect]
     Dosage: 100 MG ONE DAILY IN THE EVENING (PM) AS NEEDED
     Route: 048
  3. DILAUDID [Concomitant]
     Indication: PAIN
     Dosage: 4 MG (1 TABLET) BY MOUTH EVERY 6 HOURS
     Route: 048
     Dates: start: 20140423
  4. DILAUDID [Concomitant]
     Indication: LUNG NEOPLASM MALIGNANT
  5. NEURONTIN [Concomitant]
     Dosage: 600 MG (2 CAPSULES OF 300 MG) 3 TIMES A DAY
     Route: 048
  6. MOBIC [Concomitant]
     Indication: PAIN
     Dosage: 15 MG (1 TABLET) ONCE A DAILY AS NEEDED WITH FOOD
     Route: 048
  7. METOCLOPRAMIDE [Concomitant]
     Dosage: 10 MG, DAILY AS NEEDED
     Route: 048
     Dates: start: 20120613
  8. PAXIL [Concomitant]
     Dosage: 20 MG (1 TABLET), DAILY EVERY MORNING
     Route: 048
  9. COMPAZINE [Concomitant]
     Indication: NAUSEA
     Dosage: 10 MG (1 TABLET) EVERY 6 HOURS AS NEEDED
     Route: 048
  10. COMPAZINE [Concomitant]
     Indication: VOMITING
  11. ZANTAC [Concomitant]
     Dosage: 150 MG (1 TABLET), 2X/DAY
     Route: 048
  12. SENNA LAX [Concomitant]
     Dosage: 8.6 MG, DAILY (AT BEDTIME)
     Route: 048
     Dates: start: 20140314
  13. AMBIEN [Concomitant]
     Indication: INSOMNIA
     Dosage: 10 MG (1 TABLET), NIGHTLY AS NEEDED
     Route: 048

REACTIONS (1)
  - Depressed mood [Unknown]
